FAERS Safety Report 16389902 (Version 2)
Quarter: 2019Q2

REPORT INFORMATION
  Report Type: Spontaneous
  Country: US (occurrence: US)
  Receive Date: 20190604
  Receipt Date: 20190625
  Transmission Date: 20190711
  Serious: No
  Sender: FDA-Public Use
  Company Number: US-EMD SERONO-9079129

PATIENT
  Sex: Female

DRUGS (2)
  1. REBIF [Suspect]
     Active Substance: INTERFERON BETA-1A
     Dosage: PREFILLED SYRINGE
     Route: 058
     Dates: start: 20170109
  2. REBIF [Suspect]
     Active Substance: INTERFERON BETA-1A
     Indication: MULTIPLE SCLEROSIS
     Route: 058
     Dates: start: 20041115

REACTIONS (8)
  - Nerve compression [Not Recovered/Not Resolved]
  - Fall [Unknown]
  - Ocular hyperaemia [Unknown]
  - Injection site erythema [Unknown]
  - Carpal tunnel syndrome [Not Recovered/Not Resolved]
  - Head injury [Unknown]
  - Palpitations [Recovering/Resolving]
  - Gastrointestinal disorder [Recovering/Resolving]

NARRATIVE: CASE EVENT DATE: 2017
